FAERS Safety Report 17965519 (Version 3)
Quarter: 2020Q3

REPORT INFORMATION
  Report Type: Report from Study
  Country: None (occurrence: CH)
  Receive Date: 20200701
  Receipt Date: 20200728
  Transmission Date: 20201103
  Serious: Yes (Hospitalization)
  Sender: FDA-Public Use
  Company Number: CH-ABBVIE-20K-151-3464922-00

PATIENT
  Age: 56 Year
  Sex: Female

DRUGS (3)
  1. DUODOPA [Suspect]
     Active Substance: CARBIDOPA\LEVODOPA
     Dosage: MD: 3.2 ML, CONTINUOUS RATE DAY: 4 ML/H, CRN: 2 ML/H, ED: 1 ML, 24H THERAPY
     Route: 050
     Dates: start: 20200508
  2. DUODOPA [Suspect]
     Active Substance: CARBIDOPA\LEVODOPA
     Dosage: MD: 3 ML, CONTINUOUS RATE DAY: 3.4 ML/H, CRD: 1.4 ML/H, ED: 1 ML/24H THERAPY
     Route: 050
     Dates: start: 20190702, end: 20200508
  3. DUODOPA [Suspect]
     Active Substance: CARBIDOPA\LEVODOPA
     Indication: PARKINSON^S DISEASE
     Route: 050
     Dates: start: 20170321, end: 20190702

REACTIONS (3)
  - Off label use [Recovered/Resolved]
  - Psychiatric decompensation [Not Recovered/Not Resolved]
  - Agitation [Not Recovered/Not Resolved]

NARRATIVE: CASE EVENT DATE: 20200321
